FAERS Safety Report 9805390 (Version 1)
Quarter: 2014Q1

REPORT INFORMATION
  Report Type: Spontaneous
  Country: US (occurrence: US)
  Receive Date: 20140109
  Receipt Date: 20140109
  Transmission Date: 20141002
  Serious: No
  Sender: FDA-Public Use
  Company Number: US-PFIZER INC-2014003637

PATIENT
  Sex: Female

DRUGS (2)
  1. ADVIL [Suspect]
     Indication: HEADACHE
     Dosage: 200 MG, ONCE A DAY
     Route: 048
     Dates: start: 20140105
  2. ADVIL [Suspect]
     Indication: ARTHRALGIA

REACTIONS (1)
  - Throat irritation [Unknown]
